FAERS Safety Report 11182024 (Version 1)
Quarter: 2015Q2

REPORT INFORMATION
  Report Type: Spontaneous
  Country: US (occurrence: US)
  Receive Date: 20150611
  Receipt Date: 20150611
  Transmission Date: 20150821
  Serious: No
  Sender: FDA-Public Use
  Company Number: US-PFIZER INC-2015192401

PATIENT

DRUGS (1)
  1. AZITHROMYCIN [Suspect]
     Active Substance: AZITHROMYCIN ANHYDROUS
     Indication: OVERGROWTH BACTERIAL
     Dosage: 250 MG, UNK

REACTIONS (3)
  - Reaction to drug excipients [Unknown]
  - Condition aggravated [Unknown]
  - Drug ineffective [Unknown]
